FAERS Safety Report 10435804 (Version 1)
Quarter: 2014Q3

REPORT INFORMATION
  Report Type: Spontaneous
  Country: US (occurrence: None)
  Receive Date: 20140905
  Receipt Date: 20140905
  Transmission Date: 20150326
  Serious: Yes (Hospitalization)
  Sender: FDA-Public Use
  Company Number: None

PATIENT
  Age: 11 Month
  Sex: Male
  Weight: 11 kg

DRUGS (1)
  1. ADVATE [Suspect]
     Active Substance: ANTIHEMOPHILIC FACTOR, HUMAN RECOMBINANT
     Indication: HAEMORRHAGE INTRACRANIAL
     Dosage: CONTINOUS INFUSION CONTINOUS INTRAVENOUS
     Route: 042
     Dates: start: 20140728, end: 20140728

REACTIONS (2)
  - Factor VIII inhibition [None]
  - Drug effect decreased [None]

NARRATIVE: CASE EVENT DATE: 20140813
